FAERS Safety Report 20223743 (Version 6)
Quarter: 2022Q3

REPORT INFORMATION
  Report Type: Report from Study
  Country: CN (occurrence: CN)
  Receive Date: 20211223
  Receipt Date: 20220929
  Transmission Date: 20221026
  Serious: Yes (Hospitalization, Other)
  Sender: FDA-Public Use
  Company Number: CN-BRISTOL-MYERS SQUIBB COMPANY-BMS-2021-138567

PATIENT
  Age: 62 Year
  Sex: Male
  Weight: 64 kg

DRUGS (6)
  1. IPILIMUMAB [Suspect]
     Active Substance: IPILIMUMAB
     Indication: Non-small cell lung cancer
     Route: 042
     Dates: start: 20210927
  2. IPILIMUMAB [Suspect]
     Active Substance: IPILIMUMAB
     Dosage: MOST RECENT DOSE ON 09-NOV-2021
     Route: 042
     Dates: start: 20211109
  3. CARBOPLATIN [Suspect]
     Active Substance: CARBOPLATIN
     Indication: Non-small cell lung cancer
     Dosage: MOST RECENT DOSE ON 19-AUG-2021?DOSE DELAYED
     Route: 042
     Dates: start: 20210624
  4. CARBOPLATIN [Suspect]
     Active Substance: CARBOPLATIN
     Dosage: MOST RECENT DOSE ON 19-AUG-2021
     Route: 042
     Dates: start: 20210819
  5. PACLITAXEL [Suspect]
     Active Substance: PACLITAXEL
     Indication: Non-small cell lung cancer
     Dosage: MOST RECENT DOSE ON 19-AUG-2021?DOSE DELAYED
     Route: 042
     Dates: start: 20210624
  6. PACLITAXEL [Suspect]
     Active Substance: PACLITAXEL
     Dosage: MOST RECENT DOSE ON 19-AUG-2021
     Route: 042
     Dates: start: 20210819

REACTIONS (1)
  - Pneumonitis [Recovered/Resolved]

NARRATIVE: CASE EVENT DATE: 20211208
